FAERS Safety Report 15417290 (Version 1)
Quarter: 2018Q3

REPORT INFORMATION
  Report Type: Report from Study
  Country: DE (occurrence: DE)
  Receive Date: 20180924
  Receipt Date: 20180924
  Transmission Date: 20181010
  Serious: Yes (Congenital Anomaly, Other)
  Sender: FDA-Public Use
  Company Number: DE-AUROBINDO-AUR-APL-2018-047213

PATIENT
  Sex: Female

DRUGS (1)
  1. VALSARTAN 40MG [Suspect]
     Active Substance: VALSARTAN
     Indication: FOETAL EXPOSURE DURING PREGNANCY
     Dosage: 40 MILLIGRAM, DAILY
     Route: 065

REACTIONS (7)
  - Atrial septal defect [Unknown]
  - Foetal exposure during pregnancy [Unknown]
  - Pulmonary artery stenosis congenital [Unknown]
  - Low birth weight baby [Unknown]
  - Premature baby [Unknown]
  - Bradycardia neonatal [Unknown]
  - Convulsion neonatal [Unknown]
